FAERS Safety Report 16917364 (Version 2)
Quarter: 2020Q1

REPORT INFORMATION
  Report Type: Spontaneous
  Country: US (occurrence: US)
  Receive Date: 20191015
  Receipt Date: 20200313
  Transmission Date: 20200409
  Serious: No
  Sender: FDA-Public Use
  Company Number: US-TEVA-2019-US-1120313

PATIENT
  Sex: Female

DRUGS (3)
  1. TENORMIN [Concomitant]
     Active Substance: ATENOLOL
     Route: 065
  2. KLONOPIN 0.5MG [Concomitant]
     Route: 065
  3. CLONAZEPAM. [Suspect]
     Active Substance: CLONAZEPAM
     Indication: NERVOUS SYSTEM DISORDER
     Dosage: 0.5 MG PINK TABLET WITH R 33 ON IT.
     Route: 065
     Dates: start: 201904, end: 202002

REACTIONS (3)
  - Product substitution issue [Unknown]
  - Anxiety [Recovered/Resolved]
  - Abdominal discomfort [Recovered/Resolved]
